FAERS Safety Report 5807519-7 (Version None)
Quarter: 2008Q3

REPORT INFORMATION
  Report Type: 
  Country: None (occurrence: None)
  Receive Date: 20080711
  Receipt Date: 20080703
  Transmission Date: 20090109
  Serious: Yes (Other)
  Sender: FDA-Public Use
  Company Number: GB-ABBOTT-08P-167-0461235-00

PATIENT
  Age: 45 Year
  Sex: Female

DRUGS (4)
  1. ERYTHROMYCIN [Suspect]
     Indication: LOWER RESPIRATORY TRACT INFECTION
     Route: 048
     Dates: start: 20060609, end: 20060616
  2. ALFACALCIDOL [Suspect]
     Indication: HYPOPARATHYROIDISM
     Dates: start: 19790101
  3. AZITHROMYCIN [Suspect]
     Indication: LOWER RESPIRATORY TRACT INFECTION
     Dosage: 500 MG PER DAY
     Route: 048
     Dates: start: 20060616, end: 20060619
  4. ACIDOVERT [Concomitant]
     Indication: HYPOPARATHYROIDISM
     Route: 048

REACTIONS (1)
  - HYPOCALCAEMIA [None]
